FAERS Safety Report 9133681 (Version 4)
Quarter: 2014Q4

REPORT INFORMATION
  Report Type: Spontaneous
  Country: PT (occurrence: PT)
  Receive Date: 20130302
  Receipt Date: 20141028
  Transmission Date: 20150529
  Serious: Yes (Other)
  Sender: FDA-Public Use
  Company Number: PT-TEVA-388382ISR

PATIENT
  Age: 67 Year
  Sex: Male
  Weight: 65 kg

DRUGS (4)
  1. STALEVO [Suspect]
     Active Substance: CARBIDOPA\ENTACAPONE\LEVODOPA
     Indication: PARKINSON^S DISEASE
     Dosage: 1 DOSAGE FORMS DAILY; LEVODOPA 100MG, CARBIDOPA 25MG, ENTACAPONE 200MG
     Route: 048
     Dates: start: 2011
  2. COMTAN [Concomitant]
     Active Substance: ENTACAPONE
     Dosage: 600 MILLIGRAM DAILY;
     Route: 048
     Dates: start: 2000, end: 2011
  3. SINEMET 25/250 [Concomitant]
     Dosage: 4 DOSAGE FORMS DAILY; LEVODOPA  100MG, CARBIDOPA 25MG
     Route: 048
     Dates: start: 2000, end: 2011
  4. AZILECT [Suspect]
     Active Substance: RASAGILINE MESYLATE
     Indication: PARKINSON^S DISEASE
     Dosage: 3 MILLIGRAM DAILY;
     Route: 048
     Dates: start: 2011

REACTIONS (3)
  - Monoclonal gammopathy [Not Recovered/Not Resolved]
  - Light chain disease [Not Recovered/Not Resolved]
  - Hypergammaglobulinaemia benign monoclonal [Not Recovered/Not Resolved]

NARRATIVE: CASE EVENT DATE: 201211
